FAERS Safety Report 24957961 (Version 1)
Quarter: 2025Q1

REPORT INFORMATION
  Report Type: Spontaneous
  Country: US (occurrence: US)
  Receive Date: 20250212
  Receipt Date: 20250212
  Transmission Date: 20250409
  Serious: Yes (Other)
  Sender: DR REDDYS
  Company Number: US-DRL-USA-USA/2025/02/002077

PATIENT
  Age: 55 Year
  Sex: Female

DRUGS (1)
  1. SEVELAMER [Suspect]
     Active Substance: SEVELAMER
     Indication: Hyperphosphataemia
     Dosage: SEVELAMER CARBONATE 1,600 MG THREE TIMES A DAY

REACTIONS (2)
  - Large intestinal ulcer [Unknown]
  - Gastrointestinal haemorrhage [Recovered/Resolved]
